FAERS Safety Report 11242671 (Version 1)
Quarter: 2015Q3

REPORT INFORMATION
  Report Type: Report from Study
  Country: BR (occurrence: BR)
  Receive Date: 20150707
  Receipt Date: 20150707
  Transmission Date: 20151125
  Serious: Yes (Other)
  Sender: FDA-Public Use
  Company Number: PHHY2015BR078861

PATIENT

DRUGS (1)
  1. MYFORTIC [Suspect]
     Active Substance: MYCOPHENOLATE SODIUM
     Indication: PRODUCT USED FOR UNKNOWN INDICATION
     Route: 065

REACTIONS (6)
  - Skin cancer [Unknown]
  - Extranodal marginal zone B-cell lymphoma (MALT type) [Unknown]
  - Gastric disorder [Unknown]
  - Coronary artery disease [Unknown]
  - Kaposi^s sarcoma [Unknown]
  - Cytomegalovirus infection [Unknown]
